FAERS Safety Report 21122290 (Version 15)
Quarter: 2023Q2

REPORT INFORMATION
  Report Type: Report from Study
  Country: AU (occurrence: AU)
  Receive Date: 20220723
  Receipt Date: 20230526
  Transmission Date: 20230721
  Serious: Yes (Life-Threatening, Hospitalization, Other)
  Sender: FDA-Public Use
  Company Number: AU-AMGEN-AUSCT2022054796

PATIENT
  Age: 11 Year
  Sex: Female

DRUGS (31)
  1. CARFILZOMIB [Suspect]
     Active Substance: CARFILZOMIB
     Indication: Acute lymphocytic leukaemia
     Dosage: 68 MILLIGRAM
     Route: 042
     Dates: start: 20220316
  2. DAUNORUBICIN [Suspect]
     Active Substance: DAUNORUBICIN
     Indication: Acute lymphocytic leukaemia
     Dosage: 72 MILLIGRAM
     Route: 065
     Dates: start: 20220317
  3. PEG/L-ASPARAGINASE [Suspect]
     Active Substance: PEGASPARGASE
     Indication: Acute lymphocytic leukaemia
     Dosage: UNK INTERNATIONAL UNIT - 3000 UNK
     Route: 065
     Dates: start: 20220320
  4. VINCRISTINE [Suspect]
     Active Substance: VINCRISTINE
     Indication: Acute lymphocytic leukaemia
     Dosage: 1.8 MILLIGRAM
     Route: 065
     Dates: start: 20220316
  5. DEXAMETHASONE [Suspect]
     Active Substance: DEXAMETHASONE
     Indication: Acute lymphocytic leukaemia
     Dosage: 3.5 - 3.75 MILLIGRAM
     Route: 065
     Dates: start: 20220316
  6. METHOTREXATE [Concomitant]
     Active Substance: METHOTREXATE
     Dosage: 15 MILLIGRAM
     Route: 037
     Dates: start: 20220315, end: 20220323
  7. ALLOPURINOL [Concomitant]
     Active Substance: ALLOPURINOL
     Dosage: 100 MILLIGRAM
     Route: 048
     Dates: start: 20220315, end: 20220323
  8. ONDANSETRON [Concomitant]
     Active Substance: ONDANSETRON
     Dosage: 5 MILLIGRAM
     Route: 048
     Dates: start: 20220316, end: 20220502
  9. VANCOMYCIN [Concomitant]
     Active Substance: VANCOMYCIN
     Dosage: 540-750 MILLIGRAM
     Route: 042
     Dates: start: 20220317, end: 20220328
  10. CEFEPIME [Concomitant]
     Active Substance: CEFEPIME HYDROCHLORIDE
     Dosage: 1.8 GRAM
     Route: 042
     Dates: start: 20220317, end: 20220326
  11. CIPROFLOXACIN [Concomitant]
     Active Substance: CIPROFLOXACIN
     Dosage: 340 - 375 MILLIGRAM
     Dates: start: 20220317, end: 20220418
  12. SULFAMETHOXAZOLE\TRIMETHOPRIM [Concomitant]
     Active Substance: SULFAMETHOXAZOLE\TRIMETHOPRIM
     Dosage: 400 UNK
     Route: 048
     Dates: start: 20220318
  13. MICAFUNGIN [Concomitant]
     Active Substance: MICAFUNGIN SODIUM
     Dosage: 36 MILLIGRAM
     Route: 042
     Dates: start: 20020316, end: 20220509
  14. METOCLOPRAMIDE [Concomitant]
     Active Substance: METOCLOPRAMIDE
     Dosage: 5 MILLIGRAM
     Route: 048
     Dates: start: 20220316, end: 20220316
  15. ESOMEPRAZOLE [Concomitant]
     Active Substance: ESOMEPRAZOLE
     Dosage: 20 MILLIGRAM
     Route: 048
     Dates: start: 20220316, end: 20220412
  16. PANTOPRAZOLE [Concomitant]
     Active Substance: PANTOPRAZOLE
     Dosage: 20 MILLIGRAM
     Route: 042
     Dates: start: 20220319, end: 20220326
  17. FUROSEMIDE [Concomitant]
     Active Substance: FUROSEMIDE
     Dosage: 20-37 MILLIGRAM
     Route: 042
     Dates: start: 20220319, end: 20220327
  18. DIPHENHYDRAMINE [Concomitant]
     Active Substance: DIPHENHYDRAMINE
     Dosage: 35-40 MILLIGRAM
     Route: 042
     Dates: start: 20220314, end: 20220401
  19. ACETAMINOPHEN [Concomitant]
     Active Substance: ACETAMINOPHEN
     Dosage: 500-550 MILLIGRAM
     Dates: start: 20220317, end: 20220429
  20. CETIRIZINE [Concomitant]
     Active Substance: CETIRIZINE HYDROCHLORIDE
     Dosage: 10 MILLIGRAM
     Route: 048
     Dates: start: 20220320, end: 20220320
  21. FAMOTIDINE [Concomitant]
     Active Substance: FAMOTIDINE
     Dosage: 20 MILLIGRAM
     Route: 048
     Dates: start: 20220320, end: 20220320
  22. DEXTROSE\SODIUM CHLORIDE [Concomitant]
     Active Substance: DEXTROSE\SODIUM CHLORIDE
     Dosage: 30-150 MILLILITER
     Route: 042
     Dates: start: 20220315, end: 20220403
  23. LORAZEPAM [Concomitant]
     Active Substance: LORAZEPAM
     Dosage: 1 MILLIGRAM
     Route: 048
     Dates: start: 20220317, end: 20220317
  24. CYCLIZINE [Concomitant]
     Active Substance: CYCLIZINE
     Dosage: 18 MILLIGRAM
     Route: 042
     Dates: start: 20220317, end: 20220317
  25. DOCUSATE [Concomitant]
     Active Substance: DOCUSATE
     Dosage: 50 MILLIGRAM
     Route: 048
     Dates: start: 20220320, end: 20220324
  26. FUROSEMIDE [Concomitant]
     Active Substance: FUROSEMIDE
     Dosage: 20 MILLIGRAM
     Route: 042
     Dates: start: 20220317, end: 20220317
  27. INOTUZUMAB OZOGAMICIN [Concomitant]
     Active Substance: INOTUZUMAB OZOGAMICIN
     Dosage: UNK
  28. MAGNESIUM SULFATE [Concomitant]
     Active Substance: MAGNESIUM SULFATE
     Dosage: 10 MILLILITER
     Route: 042
     Dates: start: 20220318, end: 20220318
  29. DEXTROSE AND SODIUM CHLORIDE [Concomitant]
     Active Substance: DEXTROSE MONOHYDRATE\SODIUM CHLORIDE
     Dosage: 40 MILLILITER
     Route: 042
     Dates: start: 20220316, end: 20220316
  30. SODIUM CHLORIDE [Concomitant]
     Active Substance: SODIUM CHLORIDE
     Dosage: 40-360 MILLILITER
     Route: 042
     Dates: start: 20220317, end: 20220406
  31. SODIUM CHLORIDE [Concomitant]
     Active Substance: SODIUM CHLORIDE
     Dosage: 40 MILLILITER
     Route: 042
     Dates: start: 20220316, end: 20220316

REACTIONS (3)
  - Meningitis bacterial [Recovered/Resolved]
  - Cerebrovascular accident [Recovered/Resolved]
  - Sepsis [Recovered/Resolved]

NARRATIVE: CASE EVENT DATE: 20220325
